FAERS Safety Report 5954188-1 (Version None)
Quarter: 2008Q4

REPORT INFORMATION
  Report Type: 
  Country: None (occurrence: None)
  Receive Date: 20081117
  Receipt Date: 20081106
  Transmission Date: 20090506
  Serious: Yes (Life-Threatening, Hospitalization, Disabling, Other)
  Sender: FDA-Public Use
  Company Number: US-JNJFOC-20081002137

PATIENT
  Sex: Male
  Weight: 67.72 kg

DRUGS (2)
  1. REMICADE [Suspect]
     Indication: CROHN'S DISEASE
     Route: 042
  2. ENTOCORT EC [Concomitant]
     Indication: CROHN'S DISEASE

REACTIONS (4)
  - DIAPHRAGMATIC PARALYSIS [None]
  - HOSPITALISATION [None]
  - MYOPATHY [None]
  - RESPIRATORY ARREST [None]
